FAERS Safety Report 11528982 (Version 2)
Quarter: 2015Q3

REPORT INFORMATION
  Report Type: Report from Study
  Country: US (occurrence: US)
  Receive Date: 20150921
  Receipt Date: 20150924
  Transmission Date: 20151125
  Serious: Yes (Other)
  Sender: FDA-Public Use
  Company Number: US-GILEAD-2015-0172490

PATIENT
  Age: 37 Year
  Sex: Male

DRUGS (10)
  1. COLCHICINE. [Concomitant]
     Active Substance: COLCHICINE
  2. VITAMIN D [Concomitant]
     Active Substance: CHOLECALCIFEROL
  3. AMBRISENTAN [Suspect]
     Active Substance: AMBRISENTAN
     Indication: PULMONARY ARTERIAL HYPERTENSION
     Dosage: 10 MG, QD
     Route: 065
     Dates: start: 20120120
  4. ULORIC [Concomitant]
     Active Substance: FEBUXOSTAT
  5. AMBRISENTAN [Suspect]
     Active Substance: AMBRISENTAN
     Indication: RIGHT-TO-LEFT CARDIAC SHUNT
  6. ADCIRCA [Suspect]
     Active Substance: TADALAFIL
     Indication: PRODUCT USED FOR UNKNOWN INDICATION
     Route: 065
  7. SULFASALAZINE. [Concomitant]
     Active Substance: SULFASALAZINE
  8. LEVOTHYROXINE. [Concomitant]
     Active Substance: LEVOTHYROXINE
  9. ASPIRIN                            /00002701/ [Concomitant]
     Active Substance: ASPIRIN
  10. ALLOPURINOL. [Concomitant]
     Active Substance: ALLOPURINOL

REACTIONS (1)
  - Seizure [Recovered/Resolved]

NARRATIVE: CASE EVENT DATE: 20150914
